FAERS Safety Report 7954173-4 (Version None)
Quarter: 2011Q4

REPORT INFORMATION
  Report Type: 
  Country: None (occurrence: None)
  Receive Date: 20111202
  Receipt Date: 20111128
  Transmission Date: 20120403
  Serious: Yes (Hospitalization, Other)
  Sender: FDA-Public Use
  Company Number: US-GENZYME-THYM-1002221

PATIENT
  Sex: Female
  Weight: 81.2 kg

DRUGS (16)
  1. THYMOGLOBULIN [Suspect]
     Indication: PROPHYLAXIS AGAINST TRANSPLANT REJECTION
     Dosage: 125 MG, QD
     Route: 042
     Dates: start: 20100714, end: 20100714
  2. PROGRAF [Concomitant]
     Indication: PRODUCT USED FOR UNKNOWN INDICATION
     Dosage: 4 MG, BID
  3. NOVOLOG [Concomitant]
     Indication: PRODUCT USED FOR UNKNOWN INDICATION
  4. ALBUTEROL [Concomitant]
     Indication: PRODUCT USED FOR UNKNOWN INDICATION
     Dosage: 2 UNK, UNK
     Route: 045
  5. THYMOGLOBULIN [Suspect]
     Dosage: 125 MG, QD
     Route: 042
     Dates: start: 20100716, end: 20100716
  6. THYMOGLOBULIN [Suspect]
     Dosage: 125 MG, QD
     Route: 042
     Dates: start: 20100718, end: 20100718
  7. THYMOGLOBULIN [Suspect]
     Dosage: 125 MG, QD
     Route: 042
     Dates: start: 20100720, end: 20100720
  8. NEUTRA-PHOS [Concomitant]
     Indication: PRODUCT USED FOR UNKNOWN INDICATION
     Dosage: 1 UNK, TID
  9. SYNTHROID [Concomitant]
     Indication: PRODUCT USED FOR UNKNOWN INDICATION
     Dosage: 0.5 MG, QD
  10. LISINOPRIL [Concomitant]
     Indication: PRODUCT USED FOR UNKNOWN INDICATION
     Dosage: 10 MG, QD
  11. LASIX [Concomitant]
     Indication: PRODUCT USED FOR UNKNOWN INDICATION
     Dosage: 40 MG, QD
  12. PRILOSEC [Concomitant]
     Indication: PRODUCT USED FOR UNKNOWN INDICATION
     Dosage: 20 MG, QD
  13. PREDNISOLONE [Concomitant]
     Indication: PRODUCT USED FOR UNKNOWN INDICATION
     Dosage: 5 MG, QD
  14. PREDNISOLONE [Concomitant]
     Dosage: 40 MG, QD
  15. ESTRADIOL [Concomitant]
     Indication: PRODUCT USED FOR UNKNOWN INDICATION
     Dosage: 1 MG, QD
  16. PERCOCET [Concomitant]
     Indication: PRODUCT USED FOR UNKNOWN INDICATION

REACTIONS (17)
  - RENAL IMPAIRMENT [None]
  - INCISION SITE PAIN [None]
  - HYPOVOLAEMIA [None]
  - GOUT [None]
  - CELLULITIS [None]
  - SYNOVIAL CYST [None]
  - LIVER FUNCTION TEST ABNORMAL [None]
  - DIABETES MELLITUS [None]
  - RENAL FAILURE ACUTE [None]
  - HYPERTENSION [None]
  - DEHYDRATION [None]
  - TREMOR [None]
  - VOMITING [None]
  - DIARRHOEA [None]
  - SPLENOMEGALY [None]
  - CHEST PAIN [None]
  - ARTHRALGIA [None]
